FAERS Safety Report 16107219 (Version 1)
Quarter: 2019Q1

REPORT INFORMATION
  Report Type: Spontaneous
  Country: SE (occurrence: SE)
  Receive Date: 20190322
  Receipt Date: 20190322
  Transmission Date: 20190418
  Serious: Yes (Hospitalization)
  Sender: FDA-Public Use
  Company Number: SE-TEVA-2019-SE-1027410

PATIENT
  Age: 75 Year
  Sex: Male

DRUGS (1)
  1. ALLOPURINOL NORDIC DRUGS 100 MG TABLETT [Suspect]
     Active Substance: ALLOPURINOL
     Indication: GOUT
     Dosage: 100 MILLIGRAM DAILY; 100.0 MG?1X1TV
     Route: 065
     Dates: start: 20190226

REACTIONS (1)
  - Rash pruritic [Recovering/Resolving]

NARRATIVE: CASE EVENT DATE: 20190207
